FAERS Safety Report 21919609 (Version 11)
Quarter: 2025Q4

REPORT INFORMATION
  Report Type: Report from Study
  Country: AU (occurrence: AU)
  Receive Date: 20230127
  Receipt Date: 20251208
  Transmission Date: 20260117
  Serious: Yes (Hospitalization)
  Sender: TAKEDA
  Company Number: AU-TAKEDA-2023TUS008204

PATIENT
  Age: 51 Year
  Sex: Female

DRUGS (20)
  1. TEDUGLUTIDE [Suspect]
     Active Substance: TEDUGLUTIDE
     Indication: Short-bowel syndrome
     Dosage: 2.8 MILLIGRAM, QD
     Dates: start: 20210301, end: 20230515
  2. TEDUGLUTIDE [Suspect]
     Active Substance: TEDUGLUTIDE
  3. TEDUGLUTIDE [Suspect]
     Active Substance: TEDUGLUTIDE
  4. TEDUGLUTIDE [Suspect]
     Active Substance: TEDUGLUTIDE
  5. SODIUM BICARBONATE [Concomitant]
     Active Substance: SODIUM BICARBONATE
     Indication: Hyperkalaemia
     Dosage: 840 MILLIGRAM, QD
     Dates: start: 20221031
  6. VITAMIN A [Concomitant]
     Active Substance: VITAMIN A
     Indication: Vitamin A deficiency
     Dosage: 100000 INTERNATIONAL UNIT, Q8WEEKS
     Dates: start: 20200624
  7. VITAMIN A [Concomitant]
     Active Substance: VITAMIN A
     Dosage: 100000 INTERNATIONAL UNIT, Q8WEEKS
     Dates: start: 20220708
  8. CARBIMAZOLE [Concomitant]
     Active Substance: CARBIMAZOLE
     Indication: Hyperthyroidism
     Dosage: 5 MILLIGRAM, BID
  9. CARBIMAZOLE [Concomitant]
     Active Substance: CARBIMAZOLE
     Dosage: 10 MILLIGRAM, BID
  10. CLONAZEPAM [Concomitant]
     Active Substance: CLONAZEPAM
     Indication: Anxiety
     Dosage: 0.5 MILLIGRAM, QD
     Dates: start: 201812
  11. WARFARIN [Concomitant]
     Active Substance: WARFARIN
     Indication: Mesenteric artery thrombosis
     Dosage: 4.5 MILLIGRAM, QD
     Dates: start: 2016
  12. VITAMINS [Concomitant]
     Active Substance: VITAMINS
     Indication: Vitamin supplementation
     Dosage: UNK UNK, QD
  13. ASPIRIN [Concomitant]
     Active Substance: ASPIRIN
     Indication: Peripheral vascular disorder
     Dosage: 100 MILLIGRAM, QD
     Dates: start: 2016
  14. ATORVASTATIN [Concomitant]
     Active Substance: ATORVASTATIN
     Indication: Blood cholesterol increased
     Dosage: 40 MILLIGRAM, QD
     Dates: start: 2016
  15. ATORVASTATIN [Concomitant]
     Active Substance: ATORVASTATIN
     Indication: Peripheral vascular disorder
  16. ATORVASTATIN [Concomitant]
     Active Substance: ATORVASTATIN
     Indication: Mesenteric artery thrombosis
  17. TAUROLIDINE [Concomitant]
     Active Substance: TAUROLIDINE
     Indication: Prophylaxis
     Dosage: 1.5 MILLILITER
  18. CREON [Concomitant]
     Active Substance: PANCRELIPASE AMYLASE\PANCRELIPASE LIPASE\PANCRELIPASE PROTEASE
     Indication: Pancreatic enzyme replacement therapy
     Dosage: 50000 INTERNATIONAL UNIT
  19. COVID-19 vaccine [Concomitant]
     Indication: COVID-19
     Dosage: UNK
  20. Cal 600 [Concomitant]
     Dosage: UNK UNK, QD

REACTIONS (2)
  - Duodenal polyp [Recovered/Resolved]
  - Weight decreased [Recovered/Resolved]

NARRATIVE: CASE EVENT DATE: 20221115
